FAERS Safety Report 18513831 (Version 1)
Quarter: 2020Q4

REPORT INFORMATION
  Report Type: Spontaneous
  Country: IT (occurrence: IT)
  Receive Date: 20201117
  Receipt Date: 20201117
  Transmission Date: 20210114
  Serious: Yes (Death)
  Sender: FDA-Public Use
  Company Number: IT-INCYTE CORPORATION-2020IN011292

PATIENT

DRUGS (1)
  1. JAKAVI [Suspect]
     Active Substance: RUXOLITINIB
     Indication: POLYCYTHAEMIA
     Route: 065

REACTIONS (2)
  - COVID-19 pneumonia [Fatal]
  - Product use in unapproved indication [Unknown]
